FAERS Safety Report 5029809-0 (Version None)
Quarter: 2006Q2

REPORT INFORMATION
  Report Type: 
  Country: None (occurrence: None)
  Receive Date: 20060504
  Receipt Date: 20051231
  Transmission Date: 20061013
  Serious: No
  Sender: FDA-Public Use
  Company Number: 200610157BWH

PATIENT
  Age: 44 Year
  Sex: Male

DRUGS (3)
  1. LEVITRA [Suspect]
     Indication: ERECTILE DYSFUNCTION
     Dosage: ONCE, ORAL
     Route: 048
  2. LEVITRA [Suspect]
     Indication: PREMATURE EJACULATION
     Dosage: ONCE, ORAL
     Route: 048
  3. BENICAR [Concomitant]

REACTIONS (1)
  - HANGOVER [None]
